FAERS Safety Report 7980718-4 (Version None)
Quarter: 2011Q4

REPORT INFORMATION
  Report Type: 
  Country: None (occurrence: None)
  Receive Date: 20111214
  Receipt Date: 20111207
  Transmission Date: 20120403
  Serious: Yes (Other)
  Sender: FDA-Public Use
  Company Number: US-B.I. PHARMACEUTICALS,INC./RIDGEFIELD-2011-BP-27563BP

PATIENT
  Age: 64 Year
  Sex: Male

DRUGS (8)
  1. PRADAXA [Suspect]
  2. BYSTOLIC [Concomitant]
  3. FUROSEMIDE [Concomitant]
  4. KLOR-CON [Concomitant]
  5. PEVEXA [Concomitant]
  6. HYDRALAZINE HCL [Concomitant]
  7. PRILOSEC [Concomitant]
  8. CLONIDINE [Concomitant]

REACTIONS (2)
  - PULMONARY EMBOLISM [None]
  - DEEP VEIN THROMBOSIS [None]
